FAERS Safety Report 23084870 (Version 2)
Quarter: 2023Q4

REPORT INFORMATION
  Report Type: Spontaneous
  Country: CL (occurrence: CL)
  Receive Date: 20231019
  Receipt Date: 20231106
  Transmission Date: 20240109
  Serious: Yes (Death, Other)
  Sender: FDA-Public Use
  Company Number: CL-PFIZER INC-PV202300171828

PATIENT
  Age: 80 Year
  Sex: Female

DRUGS (2)
  1. IBRANCE [Suspect]
     Active Substance: PALBOCICLIB
     Dosage: 125 MG, CYCLIC DAILY
     Dates: end: 20230906
  2. FULVESTRANT [Concomitant]
     Active Substance: FULVESTRANT
     Dosage: UNK
     Dates: end: 20230906

REACTIONS (4)
  - Neoplasm progression [Fatal]
  - Hypertension [Fatal]
  - Diabetes mellitus [Unknown]
  - Blood insulin decreased [Unknown]

NARRATIVE: CASE EVENT DATE: 20231017
